FAERS Safety Report 23187839 (Version 1)
Quarter: 2023Q4

REPORT INFORMATION
  Report Type: Spontaneous
  Country: US (occurrence: US)
  Receive Date: 20231115
  Receipt Date: 20231115
  Transmission Date: 20240110
  Serious: No
  Sender: FDA-Public Use
  Company Number: US-NOVOPROD-1080137

PATIENT
  Age: 47 Year
  Sex: Male

DRUGS (1)
  1. NOVOLOG [Suspect]
     Active Substance: INSULIN ASPART
     Indication: Type 1 diabetes mellitus
     Dosage: 35 UNITS, TDD
     Route: 058
     Dates: start: 20220210

REACTIONS (5)
  - Skin burning sensation [Recovered/Resolved]
  - Blood glucose increased [Recovered/Resolved]
  - Administration site swelling [Recovered/Resolved]
  - Drug ineffective [Recovered/Resolved]
  - Product quality issue [Unknown]

NARRATIVE: CASE EVENT DATE: 20230510
